FAERS Safety Report 7930992-5 (Version None)
Quarter: 2011Q4

REPORT INFORMATION
  Report Type: 
  Country: None (occurrence: None)
  Receive Date: 20111121
  Receipt Date: 20111115
  Transmission Date: 20120403
  Serious: Yes (Life-Threatening, Hospitalization)
  Sender: FDA-Public Use
  Company Number: CA-ASTRAZENECA-2010SE00639

PATIENT
  Age: 70 Year
  Sex: Male
  Weight: 48 kg

DRUGS (11)
  1. CRESTOR [Suspect]
     Route: 048
     Dates: start: 20060101
  2. CRESTOR [Suspect]
     Route: 048
     Dates: start: 20090801
  3. LIPITOR [Concomitant]
     Dates: start: 20060101
  4. TEMAZEPAM [Concomitant]
  5. COVERSYL PLUS [Concomitant]
  6. LIPITOR [Concomitant]
     Dates: start: 19990101
  7. METOPROLOL TARTRATE [Concomitant]
     Route: 048
  8. EZETIMIBE [Concomitant]
  9. ALLOPURINOL [Concomitant]
  10. ENTROPHEN [Concomitant]
  11. CRESTOR [Suspect]
     Route: 048

REACTIONS (42)
  - BLOOD PHOSPHORUS INCREASED [None]
  - LEUKOCYTOSIS [None]
  - RENAL ATROPHY [None]
  - PAIN IN EXTREMITY [None]
  - BLOOD ALKALINE PHOSPHATASE INCREASED [None]
  - NORMOCHROMIC NORMOCYTIC ANAEMIA [None]
  - HEPATIC ENZYME INCREASED [None]
  - CHROMATURIA [None]
  - MYOGLOBINURIA [None]
  - PROTEIN URINE PRESENT [None]
  - ANION GAP INCREASED [None]
  - BLOOD AMYLASE INCREASED [None]
  - BLOOD MAGNESIUM INCREASED [None]
  - BLOOD UREA INCREASED [None]
  - BLOOD URINE PRESENT [None]
  - EPISTAXIS [None]
  - HYPOTENSION [None]
  - PAIN [None]
  - BLOOD CREATINE PHOSPHOKINASE INCREASED [None]
  - RHABDOMYOLYSIS [None]
  - BLOOD CREATININE INCREASED [None]
  - CARDIAC MURMUR [None]
  - MALAISE [None]
  - SERUM FERRITIN INCREASED [None]
  - DECREASED APPETITE [None]
  - DYSURIA [None]
  - GAIT DISTURBANCE [None]
  - HAEMOGLOBIN DECREASED [None]
  - HEPATOMEGALY [None]
  - HYPOCHLORAEMIA [None]
  - BLOOD CHLORIDE DECREASED [None]
  - MYOPATHY [None]
  - CHOLELITHIASIS [None]
  - HYPONATRAEMIA [None]
  - ISCHAEMIC NEPHROPATHY [None]
  - RENAL FAILURE ACUTE [None]
  - URINE OUTPUT DECREASED [None]
  - VISION BLURRED [None]
  - ASPARTATE AMINOTRANSFERASE INCREASED [None]
  - ALANINE AMINOTRANSFERASE INCREASED [None]
  - ABDOMINAL PAIN [None]
  - MYALGIA [None]
